FAERS Safety Report 8003440-7 (Version None)
Quarter: 2011Q4

REPORT INFORMATION
  Report Type: 
  Country: None (occurrence: None)
  Receive Date: 20111222
  Receipt Date: 20111222
  Transmission Date: 20120403
  Serious: Yes (Disabling)
  Sender: FDA-Public Use
  Company Number: None

PATIENT
  Age: 33 Year
  Sex: Female
  Weight: 49.895 kg

DRUGS (1)
  1. REMICADE [Suspect]
     Indication: CROHN'S DISEASE
     Dosage: 250MG
     Route: 041
     Dates: start: 20110408, end: 20111202

REACTIONS (8)
  - VIRAL INFECTION [None]
  - DIZZINESS [None]
  - NAUSEA [None]
  - DYSPNOEA [None]
  - DYSPHAGIA [None]
  - FLUSHING [None]
  - PRURITUS [None]
  - DYSPHONIA [None]
